FAERS Safety Report 11250446 (Version 1)
Quarter: 2015Q3

REPORT INFORMATION
  Report Type: Spontaneous
  Country: US (occurrence: US)
  Receive Date: 20150708
  Receipt Date: 20150708
  Transmission Date: 20151125
  Serious: No
  Sender: FDA-Public Use
  Company Number: US-ELI_LILLY_AND_COMPANY-US201011005684

PATIENT
  Age: 48 Year
  Sex: Female

DRUGS (3)
  1. VYTORIN [Concomitant]
     Active Substance: EZETIMIBE\SIMVASTATIN
  2. SYMBYAX [Suspect]
     Active Substance: FLUOXETINE HYDROCHLORIDE\OLANZAPINE
     Indication: BIPOLAR DISORDER
     Dosage: UNK, 6/25 MG UNKNOWN
     Route: 065
     Dates: start: 2008, end: 20101112
  3. NIASPAN [Concomitant]
     Active Substance: NIACIN

REACTIONS (4)
  - Somnambulism [Unknown]
  - Amnesia [Unknown]
  - Abnormal dreams [Unknown]
  - Aggression [Unknown]

NARRATIVE: CASE EVENT DATE: 20101018
